FAERS Safety Report 8371365-3 (Version None)
Quarter: 2012Q2

REPORT INFORMATION
  Report Type: 
  Country: None (occurrence: None)
  Receive Date: 20120518
  Receipt Date: 20120517
  Transmission Date: 20120825
  Serious: Yes (Death)
  Sender: FDA-Public Use
  Company Number: PHHY2011GT78862

PATIENT
  Age: 92 Year
  Sex: Female

DRUGS (1)
  1. DIOVAN HCT [Suspect]
     Indication: HYPERTENSION
     Dosage: 160 MG VALS AND 12.5 MG HYDR

REACTIONS (5)
  - PULMONARY CONGESTION [None]
  - EMPHYSEMA [None]
  - RESPIRATORY DISORDER [None]
  - CARDIAC ARREST [None]
  - CONDITION AGGRAVATED [None]
